FAERS Safety Report 5647192-4 (Version None)
Quarter: 2008Q1

REPORT INFORMATION
  Report Type: 
  Country: None (occurrence: None)
  Receive Date: 20080228
  Receipt Date: 20080228
  Transmission Date: 20080703
  Serious: Yes (Death)
  Sender: FDA-Public Use
  Company Number: None

PATIENT
  Age: 82 Year
  Sex: Male
  Weight: 70.3075 kg

DRUGS (2)
  1. RANEXA [Suspect]
     Indication: CHEST PAIN
     Dosage: 500MG BID PO
     Route: 048
     Dates: start: 20070314, end: 20070316
  2. RANEXA [Suspect]
     Indication: LEFT VENTRICULAR HYPERTROPHY
     Dosage: 500MG BID PO
     Route: 048
     Dates: start: 20070314, end: 20070316

REACTIONS (4)
  - CARDIAC ARREST [None]
  - CONTRAINDICATION TO MEDICAL TREATMENT [None]
  - LOSS OF CONSCIOUSNESS [None]
  - SYNCOPE [None]
